FAERS Safety Report 4972557-3 (Version None)
Quarter: 2006Q2

REPORT INFORMATION
  Report Type: 
  Country: None (occurrence: None)
  Receive Date: 20060413
  Receipt Date: 20060405
  Transmission Date: 20061013
  Serious: Yes (Death)
  Sender: FDA-Public Use
  Company Number: GR-ABBOTT-06P-066-0329886-00

PATIENT
  Age: 56 Year
  Sex: Female

DRUGS (3)
  1. REDUCTIL 10MG [Suspect]
     Indication: OBESITY
     Dates: start: 20060201, end: 20060319
  2. ATORVASTATIN CALCIUM [Concomitant]
     Indication: DYSLIPIDAEMIA
     Route: 048
  3. DIOSMIN [Concomitant]
     Indication: VENOUS INSUFFICIENCY
     Route: 048

REACTIONS (1)
  - CARDIAC ARREST [None]
